FAERS Safety Report 6924988-X (Version None)
Quarter: 2010Q3

REPORT INFORMATION
  Report Type: 
  Country: None (occurrence: None)
  Receive Date: 20100816
  Receipt Date: 20100806
  Transmission Date: 20110219
  Serious: Yes (Disabling)
  Sender: FDA-Public Use
  Company Number: US-KINGPHARMUSA00001-K201001025

PATIENT
  Age: 66 Year
  Sex: Male

DRUGS (11)
  1. EMBEDA [Suspect]
     Indication: BACK PAIN
     Dosage: 100 MG, BID
     Route: 048
     Dates: start: 20100706, end: 20100720
  2. EMBEDA [Suspect]
     Dosage: 120 MG, BID
     Route: 048
     Dates: start: 20100721
  3. AMBIEN [Concomitant]
     Indication: INSOMNIA
  4. NEURONTIN [Concomitant]
     Indication: NEURALGIA
  5. CYMBALTA [Concomitant]
     Indication: DEPRESSION
  6. PERCOCET [Concomitant]
     Indication: BREAKTHROUGH PAIN
  7. LISINOPRIL [Concomitant]
  8. DIGOXIN [Concomitant]
  9. XANAX [Concomitant]
     Indication: ANXIETY
  10. LIPITOR [Concomitant]
  11. ASPIRIN [Concomitant]
     Indication: CORONARY ARTERY DISEASE

REACTIONS (1)
  - AGEUSIA [None]
